FAERS Safety Report 6592850-0 (Version None)
Quarter: 2010Q1

REPORT INFORMATION
  Report Type: 
  Country: None (occurrence: None)
  Receive Date: 20100212
  Receipt Date: 20100129
  Transmission Date: 20100710
  Serious: Yes (Death)
  Sender: FDA-Public Use
  Company Number: 2009SP031228

PATIENT
  Age: 82 Year
  Sex: Male

DRUGS (7)
  1. MIRTAZAPINE [Suspect]
     Indication: DEPRESSION
     Dosage: 15 MG;QD;PO
     Route: 048
     Dates: start: 20091003, end: 20091007
  2. MOSAPRIDE CITRATE [Concomitant]
  3. LACTOMIN [Concomitant]
  4. LANSOPRAZOLE [Concomitant]
  5. MELOXICAM [Concomitant]
  6. REBAMIPIDE [Concomitant]
  7. SILODOSIN [Concomitant]

REACTIONS (1)
  - ACUTE MYOCARDIAL INFARCTION [None]
